FAERS Safety Report 6747224-6 (Version None)
Quarter: 2010Q2

REPORT INFORMATION
  Report Type: 
  Country: None (occurrence: None)
  Receive Date: 20100528
  Receipt Date: 20100521
  Transmission Date: 20101027
  Serious: Yes (Other)
  Sender: FDA-Public Use
  Company Number: US-JNJFOC-20100509489

PATIENT
  Sex: Male
  Weight: 99.79 kg

DRUGS (18)
  1. FENTANYL CITRATE [Suspect]
     Indication: PAIN
     Route: 062
  2. FENTANYL CITRATE [Suspect]
     Route: 062
  3. METHADONE [Suspect]
     Indication: PAIN
     Route: 048
  4. METHADONE [Suspect]
     Route: 048
  5. GLUCOVANCE [Concomitant]
     Indication: DIABETES MELLITUS
     Dosage: 1.25/250 MG
     Route: 048
  6. METOPROLOL [Concomitant]
     Indication: ATRIAL FIBRILLATION
     Dosage: 12.5MG/25MG 1/2 TABLET
     Route: 048
  7. LIPITOR [Concomitant]
     Indication: BLOOD CHOLESTEROL INCREASED
     Route: 048
  8. SERTRALINE HCL [Concomitant]
     Indication: DEPRESSION
     Route: 048
  9. SINGULAIR [Concomitant]
     Indication: ASTHMA
     Route: 048
  10. AVODART [Concomitant]
     Indication: PROSTATIC DISORDER
     Route: 048
  11. DIGOXIN [Concomitant]
     Indication: CARDIAC DISORDER
     Route: 048
  12. FUROSEMIDE [Concomitant]
     Indication: OEDEMA PERIPHERAL
     Route: 048
  13. MACULAR DEGENERATION MEDICATION [Concomitant]
     Indication: MACULAR DEGENERATION
     Route: 048
  14. RESTORIL [Concomitant]
     Indication: SLEEP DISORDER
     Route: 048
  15. NEURONTIN [Concomitant]
     Indication: NEUROPATHY PERIPHERAL
     Route: 048
  16. HYTRIN [Concomitant]
     Indication: PROSTATIC DISORDER
     Route: 048
  17. COUMADIN [Concomitant]
     Indication: ATRIAL FIBRILLATION
     Dosage: DOSE BASED ON PT/NR/ONE IN EVENING
     Route: 048
  18. ADVAIR DISKUS 100/50 [Concomitant]
     Indication: ASTHMA
     Dosage: 250 MCG/50 MCG
     Route: 055

REACTIONS (1)
  - ABNORMAL BEHAVIOUR [None]
